FAERS Safety Report 7027065-5 (Version None)
Quarter: 2010Q4

REPORT INFORMATION
  Report Type: 
  Country: None (occurrence: None)
  Receive Date: 20101004
  Receipt Date: 20100924
  Transmission Date: 20110411
  Serious: Yes (Hospitalization, Other)
  Sender: FDA-Public Use
  Company Number: US-AMGEN-KDL441121

PATIENT
  Sex: Female

DRUGS (2)
  1. ENBREL [Suspect]
     Indication: PSORIATIC ARTHROPATHY
     Route: 058
     Dates: start: 20060101
  2. ENBREL [Suspect]
     Indication: PSORIASIS

REACTIONS (7)
  - BASAL CELL CARCINOMA [None]
  - CONVULSION [None]
  - INJECTION SITE PAIN [None]
  - LUNG INFECTION [None]
  - MALIGNANT MELANOMA [None]
  - OPEN WOUND [None]
  - SQUAMOUS CELL CARCINOMA OF SKIN [None]
